FAERS Safety Report 8861081 (Version 1)
Quarter: 2012Q4

REPORT INFORMATION
  Report Type: Spontaneous
  Country: CA (occurrence: None)
  Receive Date: 20121023
  Receipt Date: 20121023
  Transmission Date: 20130627
  Serious: Yes (Other)
  Sender: FDA-Public Use
  Company Number: FK201203136

PATIENT
  Sex: Female

DRUGS (2)
  1. METHOTREXATE [Suspect]
     Indication: POLYARTHRITIS
  2. ADALIMUMAB [Suspect]
     Indication: POLYARTHRITIS

REACTIONS (1)
  - Breast cancer [None]
